FAERS Safety Report 4946590-1 (Version None)
Quarter: 2006Q1

REPORT INFORMATION
  Report Type: 
  Country: None (occurrence: None)
  Receive Date: 20060317
  Receipt Date: 20060306
  Transmission Date: 20060701
  Serious: Yes (Congenital Anomaly)
  Sender: FDA-Public Use
  Company Number: AU-GLAXOSMITHKLINE-B0415908A

PATIENT

DRUGS (2)
  1. LAMOTRIGINE [Suspect]
     Dosage: 250MG PER DAY
  2. VALPROIC ACID [Suspect]

REACTIONS (2)
  - CRANIOSYNOSTOSIS [None]
  - DRUG EXPOSURE DURING PREGNANCY [None]
